FAERS Safety Report 11737296 (Version 1)
Quarter: 2015Q4

REPORT INFORMATION
  Report Type: Spontaneous
  Country: US (occurrence: US)
  Receive Date: 20151110
  Receipt Date: 20151110
  Transmission Date: 20160304
  Serious: No
  Sender: FDA-Public Use
  Company Number: US-ELI_LILLY_AND_COMPANY-US201204006026

PATIENT
  Age: 90 Year
  Sex: Female
  Weight: 42.13 kg

DRUGS (13)
  1. CIPRO [Concomitant]
     Active Substance: CIPROFLOXACIN HYDROCHLORIDE
     Dosage: 125 MG, QD
  2. EXFORGE [Concomitant]
     Active Substance: AMLODIPINE BESYLATE\VALSARTAN
     Dosage: 330 MG, UNK
     Route: 048
  3. SALONPAS                           /01386301/ [Concomitant]
     Dosage: UNK, PRN
  4. ANTIVERT                           /00007101/ [Concomitant]
     Indication: DIZZINESS
     Dosage: 25 MG, PRN
  5. CENTRUM SILVER [Concomitant]
     Active Substance: MINERALS\VITAMINS
     Dosage: UNK, QD
     Route: 048
  6. STOOL SOFTENER [Concomitant]
     Active Substance: DOCUSATE CALCIUM
     Dosage: UNK, QD
     Route: 048
  7. METOPROLOL TARTRATE. [Concomitant]
     Active Substance: METOPROLOL TARTRATE
     Dosage: 50 MG, BID
     Route: 048
  8. FORTEO [Suspect]
     Active Substance: TERIPARATIDE
     Indication: OSTEOPOROSIS
     Dosage: 20 UG, QD
     Route: 058
     Dates: start: 20120328
  9. LASIX [Concomitant]
     Active Substance: FUROSEMIDE
     Dosage: 20 MG, EACH MORNING
     Route: 048
  10. HYDROCODONE W/ACETAMINOPHEN [Concomitant]
     Active Substance: ACETAMINOPHEN\HYDROCODONE BITARTRATE
     Dosage: 507.5 MG, PRN
  11. TYLENOL EXTRA STRENGTH [Concomitant]
     Active Substance: ACETAMINOPHEN
     Dosage: 500 MG, PRN
  12. CORICIDIN                          /01142901/ [Concomitant]
     Dosage: UNK, PRN
  13. OMEPRAZOLE. [Concomitant]
     Active Substance: OMEPRAZOLE
     Dosage: 20 MG, UNK
     Route: 048

REACTIONS (6)
  - Supportive care [Not Recovered/Not Resolved]
  - Musculoskeletal pain [Unknown]
  - Gait disturbance [Unknown]
  - Fall [Unknown]
  - Rib fracture [Recovering/Resolving]
  - Joint injury [Unknown]

NARRATIVE: CASE EVENT DATE: 20120416
